FAERS Safety Report 13990141 (Version 1)
Quarter: 2017Q3

REPORT INFORMATION
  Report Type: Spontaneous
  Country: CA (occurrence: CA)
  Receive Date: 20170920
  Receipt Date: 20170920
  Transmission Date: 20171128
  Serious: Yes (Other)
  Sender: FDA-Public Use
  Company Number: CA-ASTELLAS-2017US037326

PATIENT
  Age: 44 Year
  Sex: Male

DRUGS (9)
  1. MYCOPHENOLATE MOFETIL. [Suspect]
     Active Substance: MYCOPHENOLATE MOFETIL
     Route: 065
  2. TACROLIMUS. [Suspect]
     Active Substance: TACROLIMUS
     Dosage: UNK UNK, UNKNOWN FREQ. (TARGET 8-10 NG/ML)
     Route: 065
  3. SIROLIMUS. [Suspect]
     Active Substance: SIROLIMUS
     Indication: TRANSPLANT
     Dosage: UNK UNK, UNKNOWN FREQ. (TARGET 10-12 NG/ML)
     Route: 065
  4. TACROLIMUS. [Suspect]
     Active Substance: TACROLIMUS
     Dosage: UNK UNK, UNKNOWN FREQ. (TARGET 8-10 NG/ML)
     Route: 065
  5. MYCOPHENOLATE MOFETIL. [Suspect]
     Active Substance: MYCOPHENOLATE MOFETIL
     Indication: TRANSPLANT
     Route: 065
  6. ALEMTUZUMAB [Concomitant]
     Active Substance: ALEMTUZUMAB
     Indication: TRANSPLANT
     Route: 065
  7. ETANERCEPT [Concomitant]
     Active Substance: ETANERCEPT
     Indication: TRANSPLANT
     Route: 065
  8. TACROLIMUS. [Suspect]
     Active Substance: TACROLIMUS
     Indication: TRANSPLANT
     Dosage: UNK UNK, UNKNOWN FREQ. (TARGET 4-6 NG/ML)
     Route: 065
  9. ANAKINRA [Concomitant]
     Active Substance: ANAKINRA
     Indication: TRANSPLANT
     Route: 065

REACTIONS (14)
  - Post transplant lymphoproliferative disorder [Recovered/Resolved]
  - Propionibacterium infection [Unknown]
  - Stem cell transplant [Unknown]
  - Central nervous system lymphoma [Recovered/Resolved]
  - Febrile neutropenia [Unknown]
  - Meningitis viral [Unknown]
  - Enteritis [Unknown]
  - Acute kidney injury [Unknown]
  - Off label use [Unknown]
  - Colectomy [Unknown]
  - Diffuse large B-cell lymphoma [Recovered/Resolved]
  - Diarrhoea haemorrhagic [Unknown]
  - Transplant failure [Unknown]
  - Sepsis [Unknown]
